FAERS Safety Report 7875667-6 (Version None)
Quarter: 2011Q4

REPORT INFORMATION
  Report Type: 
  Country: None (occurrence: None)
  Receive Date: 20111031
  Receipt Date: 20111020
  Transmission Date: 20120403
  Serious: Yes (Other)
  Sender: FDA-Public Use
  Company Number: NL-JNJFOC-20110813064

PATIENT
  Sex: Male

DRUGS (11)
  1. REMICADE [Suspect]
     Indication: FISTULA
     Dosage: INDUCTION DOSE     WEEK 0, 2 AND 6
     Route: 042
     Dates: start: 20110512
  2. REMICADE [Suspect]
     Indication: CROHN'S DISEASE
     Dosage: INDUCTION DOSE     WEEK 0, 2 AND 6
     Route: 042
     Dates: start: 20110512
  3. REMICADE [Suspect]
     Route: 042
     Dates: end: 20110822
  4. METFORMIN HCL [Concomitant]
  5. REMICADE [Suspect]
     Route: 042
     Dates: end: 20110822
  6. PANTOPRAZOLE [Concomitant]
  7. TOLBUTAMIDE [Concomitant]
  8. MERCAPTOPURINE [Concomitant]
  9. MELOXICAM [Concomitant]
     Dates: start: 20110822
  10. PREDNISONE [Concomitant]
  11. SIMVASTATIN [Concomitant]

REACTIONS (1)
  - MYCOSIS FUNGOIDES [None]
